FAERS Safety Report 13840979 (Version 1)
Quarter: 2017Q3

REPORT INFORMATION
  Report Type: Spontaneous
  Country: GB (occurrence: GB)
  Receive Date: 20170807
  Receipt Date: 20170807
  Transmission Date: 20171127
  Serious: Yes (Life-Threatening, Other)
  Sender: FDA-Public Use
  Company Number: GB-GLAXOSMITHKLINE-GB2017121729

PATIENT
  Age: 19 Year
  Sex: Female

DRUGS (2)
  1. RANITIDINE. [Suspect]
     Active Substance: RANITIDINE
     Indication: EHLERS-DANLOS SYNDROME
     Dosage: AT NIGHT, HIGH DOSE
     Route: 065
  2. RANITIDINE. [Suspect]
     Active Substance: RANITIDINE
     Indication: HYPERMOBILITY SYNDROME
     Dosage: HIGH DOSE
     Route: 065

REACTIONS (2)
  - Withdrawal syndrome [Unknown]
  - Anaphylactic reaction [Unknown]
